FAERS Safety Report 8048113 (Version 2)
Quarter: 2012Q4

REPORT INFORMATION
  Report Type: 
  Country: US (occurrence: US)
  Receive Date: 20110721
  Receipt Date: 20121101
  Transmission Date: 20130627
  Serious: No
  Sender: FDA-Public Use
  Company Number: US-US-EMD SERONO, INC.-7071096

PATIENT
  Sex: Male

DRUGS (1)
  1. REBIF [Suspect]
     Indication: MULTIPLE SCLEROSIS
     Route: 058
     Dates: start: 20080115

REACTIONS (4)
  - Ligament sprain [Recovering/Resolving]
  - Hypertension [Recovering/Resolving]
  - Hypoaesthesia [Unknown]
  - Fatigue [Unknown]
